FAERS Safety Report 8240118-9 (Version None)
Quarter: 2012Q1

REPORT INFORMATION
  Report Type: 
  Country: None (occurrence: None)
  Receive Date: 20120327
  Receipt Date: 20120327
  Transmission Date: 20120608
  Serious: No
  Sender: FDA-Public Use
  Company Number: None

PATIENT
  Sex: Female

DRUGS (1)
  1. XARELTO [Suspect]
     Dosage: 20 MG QD PO
     Route: 048
     Dates: start: 20120223

REACTIONS (2)
  - PRURITUS [None]
  - RASH GENERALISED [None]
